FAERS Safety Report 4595434-9 (Version None)
Quarter: 2005Q1

REPORT INFORMATION
  Report Type: 
  Country: None (occurrence: None)
  Receive Date: 20050224
  Receipt Date: 20050208
  Transmission Date: 20050727
  Serious: Yes (Other)
  Sender: FDA-Public Use
  Company Number: USA041286693

PATIENT
  Sex: Male

DRUGS (2)
  1. STRATTERA [Suspect]
     Indication: ATTENTION DEFICIT/HYPERACTIVITY DISORDER
     Dosage: 60 MG A DAY
     Dates: start: 20030401, end: 20040401
  2. WELLBUTRIN [Concomitant]

REACTIONS (5)
  - ABDOMINAL DISCOMFORT [None]
  - HEPATITIS A [None]
  - LOSS OF EMPLOYMENT [None]
  - SKIN ODOUR ABNORMAL [None]
  - STOMACH DISCOMFORT [None]
